FAERS Safety Report 6540458-5 (Version None)
Quarter: 2010Q1

REPORT INFORMATION
  Report Type: 
  Country: None (occurrence: None)
  Receive Date: 20100113
  Receipt Date: 20091217
  Transmission Date: 20100710
  Serious: Yes (Other)
  Sender: FDA-Public Use
  Company Number: 1000010765

PATIENT
  Age: 70 Year
  Sex: Male

DRUGS (2)
  1. CITALOPRAM HYDROBROMIDE [Suspect]
     Indication: ATRIAL FIBRILLATION
  2. WARFARIN [Suspect]

REACTIONS (2)
  - DRUG INTERACTION [None]
  - SUBDURAL HAEMATOMA [None]
